FAERS Safety Report 7126091-5 (Version None)
Quarter: 2010Q4

REPORT INFORMATION
  Report Type: 
  Country: None (occurrence: None)
  Receive Date: 20101129
  Receipt Date: 20101118
  Transmission Date: 20110411
  Serious: Yes (Other)
  Sender: FDA-Public Use
  Company Number: CA-ASTRAZENECA-2010SE49677

PATIENT
  Age: 43 Year
  Sex: Female

DRUGS (4)
  1. ENTOCORT EC [Suspect]
     Indication: CROHN'S DISEASE
     Route: 048
     Dates: start: 20100922
  2. QUETIAPINE [Concomitant]
     Route: 048
  3. LYRICA [Concomitant]
  4. CYMBALTA [Concomitant]
     Route: 048

REACTIONS (1)
  - MEDICATION RESIDUE [None]
